FAERS Safety Report 21526195 (Version 4)
Quarter: 2022Q4

REPORT INFORMATION
  Report Type: Report from Study
  Country: US (occurrence: US)
  Receive Date: 20221031
  Receipt Date: 20221119
  Transmission Date: 20230113
  Serious: Yes (Other)
  Sender: FDA-Public Use
  Company Number: US-002147023-NVSC2022US240919

PATIENT
  Sex: Female

DRUGS (1)
  1. ENTRESTO [Suspect]
     Active Substance: SACUBITRIL\VALSARTAN
     Indication: Product used for unknown indication
     Dosage: 1 DOSAGE FORM, BID
     Route: 065

REACTIONS (6)
  - Cardiac failure chronic [Unknown]
  - Dyspnoea [Unknown]
  - Myocardial infarction [Unknown]
  - Swelling [Unknown]
  - Urine abnormality [Unknown]
  - Weight fluctuation [Unknown]
